FAERS Safety Report 24973184 (Version 1)
Quarter: 2025Q1

REPORT INFORMATION
  Report Type: Spontaneous
  Country: US (occurrence: US)
  Receive Date: 20250216
  Receipt Date: 20250216
  Transmission Date: 20250409
  Serious: No
  Sender: ROCHE
  Company Number: US-ROCHE-10000206529

PATIENT
  Age: 23 Month
  Sex: Male

DRUGS (2)
  1. ERLOTINIB [Suspect]
     Active Substance: ERLOTINIB
     Indication: Olmsted syndrome
     Route: 048
  2. ACITRETIN [Concomitant]
     Active Substance: ACITRETIN

REACTIONS (2)
  - Off label use [Unknown]
  - No adverse event [Unknown]
